FAERS Safety Report 4442692-7 (Version None)
Quarter: 2004Q3

REPORT INFORMATION
  Report Type: 
  Country: None (occurrence: None)
  Receive Date: 20040903
  Receipt Date: 20040607
  Transmission Date: 20050211
  Serious: Yes (Other)
  Sender: FDA-Public Use
  Company Number: 2004UW10343

PATIENT
  Age: 58 Year
  Sex: Male
  Weight: 82.5547 kg

DRUGS (8)
  1. CRESTOR [Suspect]
     Indication: BLOOD CHOLESTEROL INCREASED
     Dosage: 10 MG PO
     Route: 048
     Dates: start: 20040507, end: 20040517
  2. NEXIUM [Concomitant]
  3. ALLEGRA [Concomitant]
  4. LISINOPRIL [Concomitant]
  5. METFORMIN HCL [Concomitant]
  6. ACETYLSALICYLIC ACID [Concomitant]
  7. GARLIQUE [Concomitant]
  8. CENTRUM [Concomitant]

REACTIONS (2)
  - MUSCLE SPASMS [None]
  - MYALGIA [None]
